FAERS Safety Report 25234285 (Version 1)
Quarter: 2025Q2

REPORT INFORMATION
  Report Type: Spontaneous
  Country: GB (occurrence: GB)
  Receive Date: 20250424
  Receipt Date: 20250424
  Transmission Date: 20250716
  Serious: Yes (Disabling, Other)
  Sender: AUROBINDO
  Company Number: GB-MHRA-TPP21894499C10395610YC1744120300364

PATIENT
  Age: 69 Year
  Sex: Male
  Weight: 100 kg

DRUGS (14)
  1. FEXOFENADINE HYDROCHLORIDE [Suspect]
     Active Substance: FEXOFENADINE HYDROCHLORIDE
     Indication: Ill-defined disorder
     Dosage: 120 MILLIGRAM, ONCE A DAY (TAKE ONE TABLET ONCE A DAY BEFORE FOOD)
     Route: 065
     Dates: start: 20250311
  2. FOLIC ACID [Concomitant]
     Active Substance: FOLIC ACID
     Indication: Ill-defined disorder
     Dosage: 1 DOSAGE FORM, ONCE A DAY (TAKE ONE TABLET ONCE A DAY FOR 4 MONTHS)
     Route: 065
     Dates: start: 20250115
  3. DOXYCYCLINE [Concomitant]
     Active Substance: DOXYCYCLINE
     Indication: Ill-defined disorder
     Route: 065
     Dates: start: 20250203, end: 20250208
  4. PREDNISOLONE [Concomitant]
     Active Substance: PREDNISOLONE
     Indication: Ill-defined disorder
     Dosage: 8 DOSAGE FORM, ONCE A DAY (TAKE EIGHT TABLETS (40MG) ONCE A DAY FOR 7 DAYS...)
     Route: 065
     Dates: start: 20250203, end: 20250210
  5. CLOTRIMAZOLE [Concomitant]
     Active Substance: CLOTRIMAZOLE
     Indication: Ill-defined disorder
     Route: 065
     Dates: start: 20250211, end: 20250311
  6. ATORVASTATIN [Concomitant]
     Active Substance: ATORVASTATIN
     Indication: Ill-defined disorder
     Dosage: 1 DOSAGE FORM, ONCE A DAY (TAKE ONE TABLET ONCE A DAY AT NIGHT)
     Route: 065
     Dates: start: 20241120
  7. CANDESARTAN [Concomitant]
     Active Substance: CANDESARTAN
     Indication: Ill-defined disorder
     Dosage: 1 DOSAGE FORM, ONCE A DAY (TAKE ONE TABLET ONCE A DAY)
     Route: 065
     Dates: start: 20241120
  8. BECLOMETHASONE DIPROPIONATE [Concomitant]
     Active Substance: BECLOMETHASONE DIPROPIONATE
     Indication: Ill-defined disorder
     Dosage: 2 DOSAGE FORM, TWO TIMES A DAY (TAKE TWO DOSES TWICE A DAY)
     Route: 065
     Dates: start: 20241120, end: 20250311
  9. EDOXABAN [Concomitant]
     Active Substance: EDOXABAN
     Indication: Ill-defined disorder
     Dosage: 1 DOSAGE FORM, ONCE A DAY ((DIRECT ORAL ANTICOAGULANT) TAKE ONE TABLET ON...)
     Route: 065
     Dates: start: 20241120
  10. FLUCLOXACILLIN [Concomitant]
     Active Substance: FLUCLOXACILLIN
     Indication: Ill-defined disorder
     Dosage: 1 DOSAGE FORM, FOUR TIMES/DAY (1 FOUR TIMES A DAY-PRN FOR RECURRENT SCROTAL CE...)
     Route: 065
     Dates: start: 20241120
  11. OMEPRAZOLE [Concomitant]
     Active Substance: OMEPRAZOLE
     Indication: Ill-defined disorder
     Dosage: 1 DOSAGE FORM, TWO TIMES A DAY (TAKE ONE CAPSULE TWICE  DAILY)
     Route: 065
     Dates: start: 20241120
  12. PENICILLIN V [Concomitant]
     Active Substance: PENICILLIN V
     Indication: Ill-defined disorder
     Dosage: 2 DOSAGE FORM, TWO TIMES A DAY (TWO TABLET TWICE A DAY- AS DIRECTED FROM HOSPITAL)
     Route: 065
     Dates: start: 20241120
  13. ALBUTEROL [Concomitant]
     Active Substance: ALBUTEROL
     Indication: Ill-defined disorder
     Route: 065
     Dates: start: 20241120
  14. Soprobec [Concomitant]
     Indication: Ill-defined disorder
     Route: 065
     Dates: start: 20250311

REACTIONS (3)
  - Musculoskeletal stiffness [Recovered/Resolved]
  - Brain fog [Recovered/Resolved]
  - Back pain [Recovered/Resolved]
